FAERS Safety Report 5133833-7 (Version None)
Quarter: 2006Q4

REPORT INFORMATION
  Report Type: 
  Country: None (occurrence: None)
  Receive Date: 20061018
  Receipt Date: 20061016
  Transmission Date: 20070319
  Serious: Yes (Death)
  Sender: FDA-Public Use
  Company Number: HQ9687731DEC2001

PATIENT
  Sex: Male

DRUGS (6)
  1. DIMETAPP [Suspect]
     Dosage: ORAL
     Route: 048
     Dates: start: 19970331
  2. DIMETAPP [Suspect]
     Dosage: ORAL
     Route: 048
     Dates: start: 19970401
  3. ALKA-SELTZER PLUS COLD (ACETYLSALICYLIC ACID/CHLORPHENAMINE MALEATE/PH [Suspect]
     Dosage: ORAL
     Route: 048
     Dates: start: 19970331
  4. ALKA-SELTZER PLUS COLD (ACETYLSALICYLIC ACID/CHLORPHENAMINE MALEATE/PH [Suspect]
     Dosage: ORAL
     Route: 048
     Dates: start: 19970401
  5. TAVIST-D [Suspect]
     Dosage: ORAL
     Route: 048
     Dates: start: 19970331
  6. TAVIST-D [Suspect]
     Dosage: ORAL
     Route: 048
     Dates: start: 19970401

REACTIONS (1)
  - CEREBROVASCULAR ACCIDENT [None]
